FAERS Safety Report 12574048 (Version 1)
Quarter: 2016Q3

REPORT INFORMATION
  Report Type: Spontaneous
  Country: US (occurrence: US)
  Receive Date: 20160720
  Receipt Date: 20160720
  Transmission Date: 20161109
  Serious: No
  Sender: FDA-Public Use
  Company Number: US-FERRINGPH-2016FE01488

PATIENT
  Sex: Male
  Weight: 53.9 kg

DRUGS (2)
  1. ANASTROZOLE. [Concomitant]
     Active Substance: ANASTROZOLE
     Dosage: 1 MG, DAILY
  2. ZOMACTON [Suspect]
     Active Substance: SOMATROPIN
     Indication: GROWTH RETARDATION
     Dosage: 2.7 MG, DAILY
     Route: 058
     Dates: start: 20160208

REACTIONS (2)
  - Off label use [Unknown]
  - Burning sensation [Not Recovered/Not Resolved]
